FAERS Safety Report 15315564 (Version 1)
Quarter: 2018Q3

REPORT INFORMATION
  Report Type: Spontaneous
  Country: US (occurrence: US)
  Receive Date: 20180824
  Receipt Date: 20180824
  Transmission Date: 20181010
  Serious: Yes (Other)
  Sender: FDA-Public Use
  Company Number: US-LPDUSPRD-20181562

PATIENT
  Age: 15 Year

DRUGS (3)
  1. UNSPECIFIED PRETREATMENT MEDICATIONS [Concomitant]
     Dosage: UNKNOWN
     Route: 065
  2. GEMCITABINE [Suspect]
     Active Substance: GEMCITABINE\GEMCITABINE HYDROCHLORIDE
     Dosage: 500MG/M^2 DAY 1,8,15
     Route: 042
  3. NAB?PACLITAXEL [Suspect]
     Active Substance: PACLITAXEL
     Dosage: 125MG/M^2
     Route: 042

REACTIONS (5)
  - Thrombocytopenia [Unknown]
  - Vomiting [Unknown]
  - Product use issue [Unknown]
  - Nausea [Unknown]
  - Neutropenia [Unknown]
